FAERS Safety Report 16418087 (Version 1)
Quarter: 2019Q2

REPORT INFORMATION
  Report Type: Spontaneous
  Country: DE (occurrence: DE)
  Receive Date: 20190611
  Receipt Date: 20190611
  Transmission Date: 20190711
  Serious: Yes (Death)
  Sender: FDA-Public Use
  Company Number: DE-BAXTER-2019BAX011475

PATIENT
  Sex: Male

DRUGS (3)
  1. EXTRANEAL [Suspect]
     Active Substance: CALCIUM CHLORIDE\ICODEXTRIN\MAGNESIUM CHLORIDE\SODIUM CHLORIDE\SODIUM LACTATE
     Indication: PERITONEAL DIALYSIS
     Route: 033
     Dates: start: 20170327
  2. PHYSIONEAL 35 GLUCOSE 2,27 % W/V 22,7 MG/ML PERITONEALDIALYSEL?SUNG [Suspect]
     Active Substance: DEXTROSE
     Indication: PERITONEAL DIALYSIS
     Route: 033
     Dates: start: 20170327
  3. PHYSIONEAL 35 GLUCOSE 3,86 % W/V 38,6 MG/ML PERITONEALDIALYSEL?SUNG [Suspect]
     Active Substance: CALCIUM CHLORIDE\DEXTROSE\MAGNESIUM CHLORIDE\SODIUM CHLORIDE
     Indication: PERITONEAL DIALYSIS
     Route: 033
     Dates: start: 20170327

REACTIONS (2)
  - Cardiac failure chronic [Fatal]
  - Cardiac failure [Fatal]
